FAERS Safety Report 5724805-X (Version None)
Quarter: 2008Q2

REPORT INFORMATION
  Report Type: 
  Country: None (occurrence: None)
  Receive Date: 20080430
  Receipt Date: 20080430
  Transmission Date: 20081010
  Serious: No
  Sender: FDA-Public Use
  Company Number: None

PATIENT
  Sex: Male
  Weight: 79.1 kg

DRUGS (1)
  1. SPRYCEL [Suspect]
     Dosage: 550 MG
     Dates: end: 20080421

REACTIONS (1)
  - NEUTROPHIL COUNT DECREASED [None]
